FAERS Safety Report 11641091 (Version 1)
Quarter: 2015Q4

REPORT INFORMATION
  Report Type: Spontaneous
  Country: US (occurrence: US)
  Receive Date: 20151019
  Receipt Date: 20151019
  Transmission Date: 20160304
  Serious: No
  Sender: FDA-Public Use
  Company Number: US-ENDO PHARMACEUTICALS INC.-AMIT20140032

PATIENT
  Age: 62 Year
  Sex: Female

DRUGS (1)
  1. AMITRIPTYLINE HCL 150MG [Suspect]
     Active Substance: AMITRIPTYLINE HYDROCHLORIDE
     Indication: DEPRESSION
     Route: 048

REACTIONS (2)
  - Drug effect decreased [Unknown]
  - Depression [Unknown]

NARRATIVE: CASE EVENT DATE: 201407
